FAERS Safety Report 17570129 (Version 1)
Quarter: 2020Q1

REPORT INFORMATION
  Report Type: Spontaneous
  Country: TR (occurrence: TR)
  Receive Date: 20200323
  Receipt Date: 20200323
  Transmission Date: 20200409
  Serious: Yes (Other)
  Sender: FDA-Public Use
  Company Number: ALC2020TR002431

PATIENT
  Age: 3 Month
  Sex: Female

DRUGS (15)
  1. POTASSIUM [Concomitant]
     Active Substance: POTASSIUM
     Indication: PRODUCT USED FOR UNKNOWN INDICATION
     Dosage: 3.42 MEQ/L
     Route: 065
  2. POTASSIUM [Concomitant]
     Active Substance: POTASSIUM
     Dosage: 3.30 MEQ/L
     Route: 065
  3. CHLORIDE [Concomitant]
     Active Substance: CHLORIDE ION
     Indication: PRODUCT USED FOR UNKNOWN INDICATION
     Dosage: 103 MEQ/L
     Route: 065
  4. PHOSPHORUS [Concomitant]
     Active Substance: PHOSPHORUS
     Indication: PRODUCT USED FOR UNKNOWN INDICATION
     Dosage: 2.98 MG/DL
     Route: 065
  5. GLUCOSE [Concomitant]
     Active Substance: DEXTROSE
     Indication: PRODUCT USED FOR UNKNOWN INDICATION
     Dosage: 87 MG/DL
     Route: 065
  6. SODIUM [Concomitant]
     Active Substance: SODIUM
     Dosage: 142 MEQ/L
     Route: 065
  7. CHLORIDE [Concomitant]
     Active Substance: CHLORIDE ION
     Dosage: 103 MEQ/L
     Route: 065
  8. CALCIUM [Concomitant]
     Active Substance: CALCIUM
     Dosage: 8.25 MG/DL
     Route: 065
  9. PHENYLEPHRINE [Suspect]
     Active Substance: PHENYLEPHRINE HYDROCHLORIDE
     Indication: PRODUCT USED FOR UNKNOWN INDICATION
     Dosage: 1 DRP IN EACH EYE THREE OCCASIONS WITH A 10?MINUTE INTERVAL,
     Route: 047
  10. GLUCOSE [Concomitant]
     Active Substance: DEXTROSE
     Dosage: 112 UNK
     Route: 065
  11. CALCIUM [Concomitant]
     Active Substance: CALCIUM
     Indication: PRODUCT USED FOR UNKNOWN INDICATION
     Dosage: 9.02 MG/DL
     Route: 065
  12. SODIUM [Concomitant]
     Active Substance: SODIUM
     Indication: PRODUCT USED FOR UNKNOWN INDICATION
     Dosage: 146 MEQ/L
     Route: 065
  13. PHOSPHORUS [Concomitant]
     Active Substance: PHOSPHORUS
     Dosage: 4.08 MG/DL
     Route: 065
  14. CYCLOPENTOLATE HCL 1% [Suspect]
     Active Substance: CYCLOPENTOLATE HYDROCHLORIDE
     Indication: PRODUCT USED FOR UNKNOWN INDICATION
     Dosage: 1 DRP IN EACH EYE ON THREE OCCASIONS WITH A 10?MINUTE INTERVAL,
     Route: 047
  15. KETAMINE [Suspect]
     Active Substance: KETAMINE
     Indication: PRODUCT USED FOR UNKNOWN INDICATION
     Route: 065

REACTIONS (1)
  - Myoclonic epilepsy [Recovered/Resolved]
